FAERS Safety Report 14977620 (Version 1)
Quarter: 2018Q2

REPORT INFORMATION
  Report Type: Spontaneous
  Country: GB (occurrence: GB)
  Receive Date: 20180606
  Receipt Date: 20180606
  Transmission Date: 20180711
  Serious: Yes (Hospitalization)
  Sender: FDA-Public Use
  Company Number: GB-TEVA-2018-GB-902615

PATIENT
  Age: 71 Year
  Sex: Female
  Weight: 74 kg

DRUGS (2)
  1. METRONIDAZOLE. [Concomitant]
     Active Substance: METRONIDAZOLE
     Route: 065
  2. CIPROFLOXACIN. [Suspect]
     Active Substance: CIPROFLOXACIN
     Indication: BLOOD CULTURE POSITIVE
     Dosage: 800 MILLIGRAM DAILY;
     Route: 042
     Dates: start: 20180322, end: 20180326

REACTIONS (2)
  - Melaena [Unknown]
  - Haemoglobin decreased [Unknown]

NARRATIVE: CASE EVENT DATE: 20180326
